FAERS Safety Report 16845342 (Version 1)
Quarter: 2019Q3

REPORT INFORMATION
  Report Type: Report from Study
  Country: IT (occurrence: IT)
  Receive Date: 20190924
  Receipt Date: 20190924
  Transmission Date: 20191005
  Serious: Yes (Hospitalization)
  Sender: FDA-Public Use
  Company Number: IT-DSJP-DSE-2019-136271

PATIENT

DRUGS (5)
  1. DOXAZOSIN ALMUS [Concomitant]
     Active Substance: DOXAZOSIN MESYLATE
     Indication: HYPERTENSION
     Dosage: UNK
     Route: 048
  2. BISOPROLOL FUMARATE. [Concomitant]
     Active Substance: BISOPROLOL FUMARATE
     Indication: HYPERTENSION
     Dosage: UNK
     Route: 048
  3. PLAUNAZIDE [Suspect]
     Active Substance: HYDROCHLOROTHIAZIDE\OLMESARTAN MEDOXOMIL
     Indication: HYPERTENSION
     Dosage: 40/12.5 MG ONCE DAILY
     Route: 048
     Dates: end: 2019
  4. XARELTO [Concomitant]
     Active Substance: RIVAROXABAN
     Indication: ATRIAL FIBRILLATION
     Dosage: UNK
     Route: 048
  5. ANTRA                              /00661201/ [Concomitant]
     Active Substance: OMEPRAZOLE
     Indication: HIATUS HERNIA
     Route: 048

REACTIONS (4)
  - Abdominal pain upper [Recovering/Resolving]
  - Cardiac failure [Recovering/Resolving]
  - Eructation [Recovering/Resolving]
  - Blood sodium decreased [Recovering/Resolving]

NARRATIVE: CASE EVENT DATE: 20190719
